FAERS Safety Report 23396096 (Version 1)
Quarter: 2024Q1

REPORT INFORMATION
  Report Type: Spontaneous
  Country: CN (occurrence: None)
  Receive Date: 20240112
  Receipt Date: 20240112
  Transmission Date: 20240410
  Serious: Yes (Hospitalization)
  Sender: FDA-Public Use
  Company Number: 2024A006964

PATIENT
  Age: 26306 Day
  Sex: Male
  Weight: 73 kg

DRUGS (1)
  1. TAGRISSO [Suspect]
     Active Substance: OSIMERTINIB
     Indication: Lung neoplasm malignant
     Route: 048
     Dates: start: 20231123

REACTIONS (2)
  - Conjunctivitis [Recovering/Resolving]
  - Dermatochalasis [Recovering/Resolving]

NARRATIVE: CASE EVENT DATE: 20231224
